FAERS Safety Report 22887823 (Version 9)
Quarter: 2025Q1

REPORT INFORMATION
  Report Type: Spontaneous
  Country: US (occurrence: US)
  Receive Date: 20230831
  Receipt Date: 20250129
  Transmission Date: 20250409
  Serious: Yes (Hospitalization, Other)
  Sender: IPSEN BIOPHARMACEUTICALS, INC.
  Company Number: US-EPIZYME, INC-2022USEPIZYME0772

PATIENT
  Age: 87 Year
  Sex: Female
  Weight: 82 kg

DRUGS (51)
  1. TAZVERIK [Suspect]
     Active Substance: TAZEMETOSTAT HYDROBROMIDE
     Indication: Follicular lymphoma
     Dosage: 800 MG, BID
     Route: 048
     Dates: start: 20210611
  2. TAZVERIK [Suspect]
     Active Substance: TAZEMETOSTAT HYDROBROMIDE
     Route: 048
     Dates: start: 20240711, end: 20250117
  3. ACETAMINOPHEN [Concomitant]
     Active Substance: ACETAMINOPHEN
  4. CERAVE [Concomitant]
  5. DOCUSATE SODIUM [Concomitant]
     Active Substance: DOCUSATE SODIUM
  6. DONEPEZIL HYDROCHLORIDE [Concomitant]
     Active Substance: DONEPEZIL HYDROCHLORIDE
  7. ELIQUIS [Concomitant]
     Active Substance: APIXABAN
  8. FERROUS SULFATE [Concomitant]
     Active Substance: FERROUS SULFATE
  9. LIDOCAINE [Concomitant]
     Active Substance: LIDOCAINE
  10. MAGNESIUM OXIDE [Concomitant]
     Active Substance: MAGNESIUM OXIDE
  11. MENTHOLATUM [EUGENOL] [Concomitant]
  12. PROAIR HFA [Concomitant]
     Active Substance: ALBUTEROL SULFATE
     Indication: Product used for unknown indication
  13. PROPRANOLOL HYDROCHLORIDE [Concomitant]
     Active Substance: PROPRANOLOL HYDROCHLORIDE
  14. OMEPRAZOLE [Concomitant]
     Active Substance: OMEPRAZOLE
  15. RESTASIS [Concomitant]
     Active Substance: CYCLOSPORINE
  16. RISPERIDONE [Concomitant]
     Active Substance: RISPERIDONE
  17. SERTRALINE HYDROCHLORIDE [Concomitant]
     Active Substance: SERTRALINE HYDROCHLORIDE
  18. SINEMET CR [Concomitant]
     Active Substance: CARBIDOPA\LEVODOPA
  19. VITAMIN D3 [Concomitant]
     Active Substance: CHOLECALCIFEROL
  20. ONDANSETRON HYDROCHLORIDE [Concomitant]
     Active Substance: ONDANSETRON HYDROCHLORIDE
  21. ROCEPHIN [Concomitant]
     Active Substance: CEFTRIAXONE SODIUM
  22. CALCIUM [Concomitant]
     Active Substance: CALCIUM
  23. CIPROFLOXACIN HYDROCHLORIDE [Concomitant]
     Active Substance: CIPROFLOXACIN HYDROCHLORIDE
  24. FLUCELVAX NOS [Concomitant]
     Active Substance: INFLUENZA A VIRUS A/BRISBANE/10/2010 (H1N1) ANTIGEN (MDCK CELL DERIVED, PROPIOLACTONE INACTIVATED)\I
  25. LOPERAMIDE HYDROCHLORIDE [Concomitant]
     Active Substance: LOPERAMIDE HYDROCHLORIDE
  26. MENTHOL [Concomitant]
     Active Substance: MENTHOL
  27. PERCOCET [Concomitant]
     Active Substance: ACETAMINOPHEN\OXYCODONE HYDROCHLORIDE
  28. SENNOSIDES A AND B [Concomitant]
     Active Substance: SENNOSIDES A AND B
  29. VITAMIN B12 [Concomitant]
     Active Substance: CYANOCOBALAMIN
  30. VITAMIN C [Concomitant]
     Active Substance: ASCORBIC ACID
  31. PRILOCAINE [Concomitant]
     Active Substance: PRILOCAINE
  32. ZINC OXIDE [Concomitant]
     Active Substance: ZINC OXIDE
     Indication: Product used for unknown indication
  33. ATIVAN [Concomitant]
     Active Substance: LORAZEPAM
  34. AUGMENTIN [Concomitant]
     Active Substance: AMOXICILLIN\CLAVULANATE POTASSIUM
  35. CEFTRIAXONE [Concomitant]
     Active Substance: CEFTRIAXONE
  36. DECADRON [Concomitant]
     Active Substance: DEXAMETHASONE
  37. IMIPENEM [Concomitant]
     Active Substance: IMIPENEM
  38. ISOSORBIDE MONONITRATE [Concomitant]
     Active Substance: ISOSORBIDE MONONITRATE
  39. LASIX [Concomitant]
     Active Substance: FUROSEMIDE
  40. LOSARTAN POTASSIUM [Concomitant]
     Active Substance: LOSARTAN POTASSIUM
  41. MACRODANTIN [Concomitant]
     Active Substance: NITROFURANTOIN
  42. MEROPENEM [Concomitant]
     Active Substance: MEROPENEM
  43. PERIDEX [CHLORHEXIDINE GLUCONATE] [Concomitant]
  44. PROCAINE HYDROCHLORIDE [Concomitant]
     Active Substance: PROCAINE HYDROCHLORIDE
  45. ACETAMINOPHEN\TRAMADOL [Concomitant]
     Active Substance: ACETAMINOPHEN\TRAMADOL
  46. UNASYNA [AMPICILLIN SODIUM;SULBACTAM SODIUM] [Concomitant]
     Route: 042
  47. VANCOMYCIN HYDROCHLORIDE [Concomitant]
     Active Substance: VANCOMYCIN HYDROCHLORIDE
     Route: 042
  48. VITAMIN D NOS [Concomitant]
     Active Substance: CHOLECALCIFEROL\ERGOCALCIFEROL
  49. METOPROLOL SUCCINATE [Concomitant]
     Active Substance: METOPROLOL SUCCINATE
  50. ZOFRAN [Concomitant]
     Active Substance: ONDANSETRON HYDROCHLORIDE
  51. ULTRAM [Concomitant]
     Active Substance: TRAMADOL HYDROCHLORIDE

REACTIONS (19)
  - Urinary incontinence [Recovered/Resolved]
  - Dyspnoea [Recovered/Resolved]
  - Blood pressure increased [Recovering/Resolving]
  - Cardiac failure congestive [Not Recovered/Not Resolved]
  - Nephrolithiasis [Unknown]
  - Diarrhoea [Unknown]
  - Urinary tract infection [Recovered/Resolved]
  - Urinary tract infection [Recovering/Resolving]
  - White blood cell count increased [Recovered/Resolved]
  - Asthenia [Recovering/Resolving]
  - White blood cell count increased [Not Recovered/Not Resolved]
  - Feeling abnormal [Not Recovered/Not Resolved]
  - Respiratory tract infection viral [Not Recovered/Not Resolved]
  - Blood pressure increased [Not Recovered/Not Resolved]
  - Fatigue [Not Recovered/Not Resolved]
  - Decreased appetite [Unknown]
  - Blood urine present [Unknown]
  - Product use complaint [Unknown]
  - Hospice care [Unknown]

NARRATIVE: CASE EVENT DATE: 20221120
